FAERS Safety Report 13083362 (Version 2)
Quarter: 2017Q1

REPORT INFORMATION
  Report Type: Spontaneous
  Country: IT (occurrence: IT)
  Receive Date: 20170104
  Receipt Date: 20170111
  Transmission Date: 20170428
  Serious: Yes (Other)
  Sender: FDA-Public Use
  Company Number: IT-SUN PHARMACEUTICAL INDUSTRIES LTD-2016RR-130433

PATIENT
  Age: 63 Year
  Sex: Female

DRUGS (2)
  1. GEMCITABINE [Suspect]
     Active Substance: GEMCITABINE\GEMCITABINE HYDROCHLORIDE
     Indication: PANCREATIC CARCINOMA METASTATIC
     Dosage: 200 MG/M2 CYCLICAL
     Route: 042
     Dates: start: 20160201, end: 20160701
  2. ABRAXANE [Suspect]
     Active Substance: PACLITAXEL
     Indication: PANCREATIC CARCINOMA METASTATIC
     Dosage: 200 MG/M2 CYCLICAL
     Route: 042
     Dates: start: 20160201, end: 20160701

REACTIONS (3)
  - Neutropenia [Unknown]
  - Disease progression [Unknown]
  - Thrombocytopenia [Unknown]
